FAERS Safety Report 12404304 (Version 1)
Quarter: 2016Q2

REPORT INFORMATION
  Report Type: Spontaneous
  Country: US (occurrence: US)
  Receive Date: 20160525
  Receipt Date: 20160525
  Transmission Date: 20160815
  Serious: No
  Sender: FDA-Public Use
  Company Number: US-TARO-2015TAR00615

PATIENT
  Age: 2 Year
  Sex: Male

DRUGS (3)
  1. FEVERALL [Suspect]
     Active Substance: ACETAMINOPHEN
     Indication: PYREXIA
     Dosage: 80 MG, UNK
     Dates: start: 20150625
  2. TYLENOL [Concomitant]
     Active Substance: ACETAMINOPHEN
     Dosage: 240 MG, ONCE
     Dates: start: 20150624, end: 20150624
  3. TYLENOL [Concomitant]
     Active Substance: ACETAMINOPHEN
     Dosage: 160 MG, ONCE
     Dates: start: 20150625, end: 20150625

REACTIONS (2)
  - Drug ineffective [Not Recovered/Not Resolved]
  - Body temperature increased [Not Recovered/Not Resolved]

NARRATIVE: CASE EVENT DATE: 20150625
